FAERS Safety Report 9726178 (Version 1)
Quarter: 2013Q4

REPORT INFORMATION
  Report Type: Spontaneous
  Country: US (occurrence: None)
  Receive Date: 20131202
  Receipt Date: 20131202
  Transmission Date: 20140711
  Serious: Yes (Other)
  Sender: FDA-Public Use
  Company Number: None

PATIENT
  Age: 69 Year
  Sex: Male

DRUGS (7)
  1. REVLIMID 10MG CELGENE [Suspect]
     Indication: PLASMA CELL MYELOMA
     Dosage: 10MG  QDX21D/28D  ORALLY
     Route: 048
  2. LOSARTAN [Concomitant]
  3. PRAVASTATIN [Concomitant]
  4. GABAPENTIN [Concomitant]
  5. OMEPRAZOLE [Concomitant]
  6. TERAZOSIN [Concomitant]
  7. NORTRIPTYLINE [Concomitant]

REACTIONS (1)
  - Deep vein thrombosis [None]
